FAERS Safety Report 8510029-X (Version None)
Quarter: 2012Q2

REPORT INFORMATION
  Report Type: 
  Country: None (occurrence: None)
  Receive Date: 20120405
  Receipt Date: 20090625
  Transmission Date: 20120825
  Serious: Yes (Other)
  Sender: FDA-Public Use
  Company Number: PHEH2009US06712

PATIENT
  Sex: Female

DRUGS (1)
  1. RECLAST [Suspect]
     Dosage: 5 MG, ONE YEAR, INTRAVENOUS
     Route: 042

REACTIONS (2)
  - RENAL FAILURE ACUTE [None]
  - BACK PAIN [None]
